FAERS Safety Report 20570682 (Version 1)
Quarter: 2022Q1

REPORT INFORMATION
  Report Type: Spontaneous
  Country: FR (occurrence: FR)
  Receive Date: 20220309
  Receipt Date: 20220309
  Transmission Date: 20220424
  Serious: Yes (Hospitalization)
  Sender: FDA-Public Use
  Company Number: FR-AFSSAPS-TS20171970

PATIENT
  Age: 57 Year
  Sex: Female

DRUGS (3)
  1. TRAMADOL [Suspect]
     Active Substance: TRAMADOL
     Indication: Sciatica
     Dosage: 100 MILLIGRAM
     Route: 048
     Dates: end: 20171218
  2. ESCARGOT [Suspect]
     Active Substance: ESCARGOT
     Indication: Cough
     Dosage: UNK
     Route: 048
     Dates: start: 20171205, end: 20171207
  3. AZITHROMYCIN DIHYDRATE [Suspect]
     Active Substance: AZITHROMYCIN DIHYDRATE
     Indication: Bronchitis
     Dosage: 500 MILLIGRAM, ONCE A DAY
     Route: 048
     Dates: start: 20171205, end: 20171207

REACTIONS (1)
  - Thrombocytopenic purpura [Recovering/Resolving]

NARRATIVE: CASE EVENT DATE: 20171212
